FAERS Safety Report 4539946-2 (Version None)
Quarter: 2004Q4

REPORT INFORMATION
  Report Type: 
  Country: None (occurrence: None)
  Receive Date: 20041223
  Receipt Date: 20041210
  Transmission Date: 20050328
  Serious: Yes (Other)
  Sender: FDA-Public Use
  Company Number: 2004109571

PATIENT
  Sex: Female
  Weight: 42.1845 kg

DRUGS (5)
  1. DILANTIN [Suspect]
     Indication: CONVULSION
     Dosage: 200 MG (100 MG, 2 IN 1 D), ORAL
     Route: 048
  2. DONEPEZIL HCL [Suspect]
     Indication: ILL-DEFINED DISORDER
     Dosage: ORAL
     Route: 048
  3. MEMANTINE HCL [Suspect]
     Indication: NERVOUS SYSTEM DISORDER
     Dates: start: 20040101
  4. LANSOPRAZOLE [Suspect]
     Indication: STOMACH DISCOMFORT
     Dates: start: 20040101
  5. MULTIVITAMIN [Concomitant]

REACTIONS (7)
  - ABDOMINAL DISTENSION [None]
  - DECREASED APPETITE [None]
  - DRUG INEFFECTIVE [None]
  - FLATULENCE [None]
  - GASTRIC DISORDER [None]
  - STOMACH DISCOMFORT [None]
  - WEIGHT DECREASED [None]
